FAERS Safety Report 7977833-8 (Version None)
Quarter: 2011Q4

REPORT INFORMATION
  Report Type: 
  Country: None (occurrence: None)
  Receive Date: 20111214
  Receipt Date: 20111202
  Transmission Date: 20120403
  Serious: No
  Sender: FDA-Public Use
  Company Number: US-AMGEN-USASP2011060509

PATIENT
  Age: 44 Year
  Sex: Female

DRUGS (2)
  1. ENBREL [Suspect]
     Indication: RHEUMATOID ARTHRITIS
     Dosage: 50 MG, ONE TIME ONLY
     Route: 058
     Dates: start: 20111106, end: 20111106
  2. METHOTREXATE [Concomitant]
     Indication: RHEUMATOID ARTHRITIS
     Dosage: 15 MG, QWK
     Route: 048
     Dates: start: 20110825, end: 20111117

REACTIONS (4)
  - RASH MACULO-PAPULAR [None]
  - RASH ERYTHEMATOUS [None]
  - RASH VESICULAR [None]
  - RASH PRURITIC [None]
